FAERS Safety Report 10246874 (Version 2)
Quarter: 2014Q3

REPORT INFORMATION
  Report Type: Spontaneous
  Country: US (occurrence: US)
  Receive Date: 20140619
  Receipt Date: 20140725
  Transmission Date: 20150326
  Serious: Yes (Death, Hospitalization, Other)
  Sender: FDA-Public Use
  Company Number: US-INCYTE CORPORATION-2014IN001677

PATIENT
  Age: 65 Year
  Sex: Male

DRUGS (15)
  1. GLIPIZIDE. [Concomitant]
     Active Substance: GLIPIZIDE
  2. PLAVIX [Concomitant]
     Active Substance: CLOPIDOGREL BISULFATE
  3. FOLIC ACID. [Concomitant]
     Active Substance: FOLIC ACID
  4. CLINDAMYCIN [Concomitant]
     Active Substance: CLINDAMYCIN\CLINDAMYCIN PHOSPHATE
  5. FLUOROMETHOLONE. [Concomitant]
     Active Substance: FLUOROMETHOLONE
  6. VITAMIN D                          /00107901/ [Concomitant]
     Active Substance: ERGOCALCIFEROL
  7. GABAPENTIN. [Concomitant]
     Active Substance: GABAPENTIN
  8. MORPHINE [Concomitant]
     Active Substance: MORPHINE
  9. OXYCODONE [Concomitant]
     Active Substance: OXYCODONE
  10. TIMOLOL MALEATE. [Concomitant]
     Active Substance: TIMOLOL MALEATE
  11. PREDNISONE. [Concomitant]
     Active Substance: PREDNISONE
  12. ACETYLSALICYLIC ACID [Concomitant]
     Active Substance: ASPIRIN
  13. JAKAFI [Suspect]
     Active Substance: RUXOLITINIB
     Indication: MYELOFIBROSIS
     Dosage: 15 MG, BID
     Route: 048
     Dates: start: 20130424, end: 20140415
  14. IPRATROPIUM [Concomitant]
     Active Substance: IPRATROPIUM
  15. METHOTREXATE [Concomitant]
     Active Substance: METHOTREXATE

REACTIONS (8)
  - Acute myocardial infarction [Unknown]
  - Urinary tract infection [Unknown]
  - Coronary artery disease [Fatal]
  - Cardiac failure congestive [Fatal]
  - Cardiogenic shock [Unknown]
  - Systemic inflammatory response syndrome [Unknown]
  - Febrile neutropenia [Unknown]
  - Chills [Unknown]

NARRATIVE: CASE EVENT DATE: 20140318
